FAERS Safety Report 10674351 (Version 7)
Quarter: 2017Q4

REPORT INFORMATION
  Report Type: Report from Study
  Country: US (occurrence: US)
  Receive Date: 20141224
  Receipt Date: 20171213
  Transmission Date: 20180320
  Serious: Yes (Other)
  Sender: FDA-Public Use
  Company Number: US-SA-2014SA016275

PATIENT
  Age: 59 Year
  Sex: Female
  Weight: 72.57 kg

DRUGS (10)
  1. AUBAGIO [Suspect]
     Active Substance: TERIFLUNOMIDE
     Indication: MULTIPLE SCLEROSIS
     Route: 048
     Dates: start: 20140102
  2. LEVOTHYROXINE. [Concomitant]
     Active Substance: LEVOTHYROXINE
     Indication: THYROID DISORDER
  3. VITAMIN D [Concomitant]
     Active Substance: CHOLECALCIFEROL
     Indication: VITAMIN D DECREASED
     Dosage: DOSE: 50,000 (UNITS NOT SPECIFIED) TWICE/WEEKLY
     Dates: start: 20140310
  4. AUBAGIO [Suspect]
     Active Substance: TERIFLUNOMIDE
     Indication: MULTIPLE SCLEROSIS
     Route: 048
     Dates: start: 20161201
  5. ASPIRIN. [Concomitant]
     Active Substance: ASPIRIN
     Route: 065
  6. BETASERON [Concomitant]
     Active Substance: INTERFERON BETA-1B
     Indication: MULTIPLE SCLEROSIS
     Dates: start: 20140101, end: 20140101
  7. AUBAGIO [Suspect]
     Active Substance: TERIFLUNOMIDE
     Indication: MULTIPLE SCLEROSIS
     Route: 048
  8. LEVOTHYROXINE. [Concomitant]
     Active Substance: LEVOTHYROXINE
     Indication: THYROID DISORDER
     Dates: start: 20140310
  9. SYNTHROID [Concomitant]
     Active Substance: LEVOTHYROXINE SODIUM
     Route: 065
  10. VITAMIN B12 [Concomitant]
     Active Substance: CYANOCOBALAMIN
     Dosage: I TABLET
     Dates: start: 20140310

REACTIONS (14)
  - Multiple sclerosis relapse [Unknown]
  - Memory impairment [Recovering/Resolving]
  - Paraesthesia [Unknown]
  - Diarrhoea [Unknown]
  - Product use issue [Unknown]
  - Irritable bowel syndrome [Unknown]
  - Alopecia [Recovering/Resolving]
  - Blood pressure increased [Recovered/Resolved]
  - Cataract [Unknown]
  - Vitamin D increased [Unknown]
  - Oropharyngeal pain [Unknown]
  - Therapeutic response unexpected [Unknown]
  - Pollakiuria [Recovering/Resolving]
  - Hypertension [Recovered/Resolved]

NARRATIVE: CASE EVENT DATE: 201404
